FAERS Safety Report 17209399 (Version 2)
Quarter: 2021Q1

REPORT INFORMATION
  Report Type: Report from Study
  Country: NL (occurrence: NL)
  Receive Date: 20191227
  Receipt Date: 20210212
  Transmission Date: 20210419
  Serious: Yes (Other)
  Sender: FDA-Public Use
  Company Number: NL-MYLANLABS-2019M1127847

PATIENT
  Sex: Female

DRUGS (1)
  1. GLATIRAMEERACETAAT MYLAN 20 MG/ML [Suspect]
     Active Substance: GLATIRAMER ACETATE
     Indication: MULTIPLE SCLEROSIS
     Dosage: UNK UNK, QD (1.00 X PER DAG)
     Route: 058

REACTIONS (3)
  - Palpitations [Recovered/Resolved]
  - Multiple sclerosis relapse [Recovering/Resolving]
  - Heart rate decreased [Recovered/Resolved]

NARRATIVE: CASE EVENT DATE: 20201130
